FAERS Safety Report 7814347-X (Version None)
Quarter: 2011Q4

REPORT INFORMATION
  Report Type: 
  Country: None (occurrence: None)
  Receive Date: 20111011
  Receipt Date: 20111003
  Transmission Date: 20120403
  Serious: Yes (Hospitalization, Other)
  Sender: FDA-Public Use
  Company Number: 2010SP051441

PATIENT
  Age: 36 Year
  Sex: Female
  Weight: 61.2356 kg

DRUGS (1)
  1. NUVARING [Suspect]
     Indication: CONTRACEPTION
     Dosage: VAG
     Route: 067
     Dates: start: 20070101, end: 20081020

REACTIONS (15)
  - PAIN [None]
  - LOBAR PNEUMONIA [None]
  - ABDOMINAL PAIN [None]
  - FATIGUE [None]
  - PULMONARY EMBOLISM [None]
  - FLANK PAIN [None]
  - VENOUS THROMBOSIS [None]
  - ANXIETY [None]
  - FAMILY STRESS [None]
  - CONSTIPATION [None]
  - PANIC ATTACK [None]
  - DEEP VEIN THROMBOSIS [None]
  - DEPRESSION [None]
  - HEADACHE [None]
  - UTERINE CERVIX STENOSIS [None]
